FAERS Safety Report 9694993 (Version 3)
Quarter: 2016Q1

REPORT INFORMATION
  Report Type: Report from Study
  Country: JP (occurrence: JP)
  Receive Date: 20131119
  Receipt Date: 20160204
  Transmission Date: 20160526
  Serious: Yes (Death, Disabling, Other)
  Sender: FDA-Public Use
  Company Number: JP-ALEXION PHARMACEUTICALS INC.-A201303245

PATIENT
  Age: 4 Year
  Sex: Female
  Weight: 12 kg

DRUGS (17)
  1. SOLU-CORTEF [Concomitant]
     Active Substance: HYDROCORTISONE SODIUM SUCCINATE
     Indication: BONE MARROW TRANSPLANT
     Dosage: 26.2 MG, QD
     Route: 041
     Dates: start: 20130531, end: 20130922
  2. SOLIRIS [Suspect]
     Active Substance: ECULIZUMAB
     Indication: HAEMOLYTIC URAEMIC SYNDROME
     Dosage: 600 MG, SINGLE
     Route: 042
     Dates: start: 20130928, end: 20130928
  3. SOLIRIS [Suspect]
     Active Substance: ECULIZUMAB
     Dosage: 300 MG, SINGLE
     Route: 042
     Dates: start: 20131004, end: 20131004
  4. RECOMODULIN [Concomitant]
     Active Substance: THROMBOMODULIN ALFA
     Indication: BONE MARROW TRANSPLANT
     Dosage: 4480 IU, QD
     Route: 041
     Dates: start: 20130630, end: 20131019
  5. DENOSINE                           /00090105/ [Concomitant]
     Indication: BONE MARROW TRANSPLANT
     Dosage: 115 MG, QD
     Route: 041
     Dates: start: 20130919, end: 20131018
  6. HANP [Concomitant]
     Active Substance: CARPERITIDE
     Indication: PRODUCT USED FOR UNKNOWN INDICATION
     Dosage: 1958 MG, QD
     Route: 041
     Dates: start: 20130702, end: 20131019
  7. AMBISOME [Concomitant]
     Active Substance: AMPHOTERICIN B
     Indication: FUNGAL INFECTION
     Dosage: 46 MG, QD
     Route: 042
     Dates: start: 20130921, end: 20131012
  8. NEUTROGIN [Concomitant]
     Active Substance: LENOGRASTIM
     Indication: BONE MARROW TRANSPLANT
     Dosage: 50 ?G, QD
     Route: 041
     Dates: start: 20130709, end: 20130916
  9. CRAVIT [Concomitant]
     Active Substance: LEVOFLOXACIN
     Indication: INFECTION
     Dosage: 105 MG, QD
     Route: 041
     Dates: start: 20130903, end: 20130924
  10. ZOSYN [Concomitant]
     Active Substance: PIPERACILLIN SODIUM\TAZOBACTAM SODIUM
     Indication: INFECTION
     Dosage: 3.3 G, QD
     Route: 041
     Dates: start: 20130702, end: 20130930
  11. VFEND [Concomitant]
     Active Substance: VORICONAZOLE
     Indication: FUNGAL INFECTION
     Dosage: 77 MG, QD
     Route: 041
     Dates: start: 20130831, end: 20130922
  12. NICARDIPINE                        /00639802/ [Concomitant]
     Indication: SECONDARY HYPERTENSION
     Dosage: 24.4 MG, QD
     Route: 041
     Dates: start: 20130628, end: 20131016
  13. TEICOPLANIN [Concomitant]
     Active Substance: TEICOPLANIN
     Indication: INFECTION
     Dosage: 123 MG, QD
     Route: 041
     Dates: start: 20130820, end: 20131006
  14. NAFAMOSTAT [Concomitant]
     Active Substance: NAFAMOSTAT
     Indication: THROMBOTIC MICROANGIOPATHY
     Dosage: 350 MG, QD
     Route: 041
     Dates: start: 20130924, end: 20131008
  15. METHOTREXATE [Concomitant]
     Active Substance: METHOTREXATE
     Indication: BONE MARROW TRANSPLANT
     Dosage: 5.6 MG, QD
     Route: 041
     Dates: start: 20130626, end: 20130903
  16. PROGRAF [Concomitant]
     Active Substance: TACROLIMUS\TACROLIMUS ANHYDROUS
     Indication: BONE MARROW TRANSPLANT
     Dosage: 0.22 MG, QD
     Route: 041
     Dates: start: 20130624, end: 20130929
  17. ANTHROBIN P [Concomitant]
     Active Substance: ANTITHROMBIN III HUMAN
     Indication: BONE MARROW TRANSPLANT
     Dosage: 500 IU, QD
     Route: 041
     Dates: start: 20130617, end: 20130911

REACTIONS (5)
  - Cytomegalovirus infection [Recovered/Resolved]
  - Condition aggravated [Fatal]
  - Multiple organ dysfunction syndrome [Fatal]
  - Neuroblastoma [Fatal]
  - Renal impairment [Not Recovered/Not Resolved]

NARRATIVE: CASE EVENT DATE: 201310
